FAERS Safety Report 9283834 (Version 3)
Quarter: 2013Q3

REPORT INFORMATION
  Report Type: Spontaneous
  Country: IE (occurrence: IE)
  Receive Date: 20130510
  Receipt Date: 20130821
  Transmission Date: 20140515
  Serious: Yes (Hospitalization)
  Sender: FDA-Public Use
  Company Number: IE-ROCHE-1221147

PATIENT
  Sex: 0

DRUGS (1)
  1. MABTHERA [Suspect]
     Indication: PRODUCT USED FOR UNKNOWN INDICATION
     Route: 065

REACTIONS (1)
  - Progressive multifocal leukoencephalopathy [Unknown]
